FAERS Safety Report 7133222-X (Version None)
Quarter: 2010Q4

REPORT INFORMATION
  Report Type: 
  Country: None (occurrence: None)
  Receive Date: 20101117
  Receipt Date: 20101103
  Transmission Date: 20110411
  Serious: Yes (Hospitalization)
  Sender: FDA-Public Use
  Company Number: 2010-01039

PATIENT
  Age: 50 Year
  Sex: Female
  Weight: 77.1115 kg

DRUGS (2)
  1. CEPHALEXIN [Suspect]
     Indication: DENTAL OPERATION
     Dosage: 500 MG (500 MG, 4 IN 1 D), PER ORAL
     Route: 048
     Dates: start: 20101015, end: 20101022
  2. CEPHALEXIN [Suspect]
     Indication: INFECTION PROPHYLAXIS
     Dosage: 500 MG (500 MG, 4 IN 1 D), PER ORAL
     Route: 048
     Dates: start: 20101015, end: 20101022

REACTIONS (8)
  - CHEST DISCOMFORT [None]
  - DIARRHOEA [None]
  - DRUG DISPENSING ERROR [None]
  - DYSPNOEA [None]
  - EXPIRED DRUG ADMINISTERED [None]
  - PRODUCT ODOUR ABNORMAL [None]
  - TACHYCARDIA [None]
  - VOMITING [None]
